FAERS Safety Report 8505862-4 (Version None)
Quarter: 2012Q3

REPORT INFORMATION
  Report Type: 
  Country: None (occurrence: None)
  Receive Date: 20120703
  Receipt Date: 20120625
  Transmission Date: 20120928
  Serious: Yes (Other)
  Sender: FDA-Public Use
  Company Number: 2012SP035685

PATIENT
  Age: 31 Year
  Sex: Female

DRUGS (3)
  1. IMPLANON [Suspect]
  2. ACETAMINOPHEN [Concomitant]
  3. IMPLANON [Suspect]
     Indication: CONTRACEPTION
     Dosage: 68 MG, SC
     Route: 058
     Dates: start: 20080923, end: 20120530

REACTIONS (1)
  - DEVICE BREAKAGE [None]
